FAERS Safety Report 4526478-0 (Version None)
Quarter: 2004Q4

REPORT INFORMATION
  Report Type: 
  Country: None (occurrence: None)
  Receive Date: 20041210
  Receipt Date: 20041125
  Transmission Date: 20050328
  Serious: Yes (Death)
  Sender: FDA-Public Use
  Company Number: A04200401129

PATIENT
  Age: 67 Year
  Sex: Male

DRUGS (7)
  1. PLAVIX [Suspect]
     Indication: CORONARY ARTERIAL STENT INSERTION
     Dosage: 300 MG LOADING DOSE FOLLOWED BY 75 MG OD ORAL
     Route: 048
     Dates: start: 20041114
  2. SODIUM BICARBONATE - GRANULE [Suspect]
     Dosage: 3 TO 5 TEASPOONS ORAL
     Route: 048
     Dates: start: 20041101
  3. BELOC-ZOC (METOPROLOL SUCCINATE) [Concomitant]
  4. ASPIRIN [Concomitant]
  5. DELIX PLUS (RAMIPRIL + HYDROCHLOROTHIAZIDE) [Concomitant]
  6. LASIX [Concomitant]
  7. ZOCOR [Concomitant]

REACTIONS (6)
  - CARDIOGENIC SHOCK [None]
  - DRUG INEFFECTIVE [None]
  - DRUG INTERACTION [None]
  - MYOCARDIAL INFARCTION [None]
  - POST PROCEDURAL COMPLICATION [None]
  - STENT OCCLUSION [None]
